FAERS Safety Report 6169497-3 (Version None)
Quarter: 2009Q2

REPORT INFORMATION
  Report Type: 
  Country: None (occurrence: None)
  Receive Date: 20090424
  Receipt Date: 20081208
  Transmission Date: 20091009
  Serious: No
  Sender: FDA-Public Use
  Company Number: SPV1-2008-02686

PATIENT
  Age: 41 Year
  Sex: Male
  Weight: 117.9 kg

DRUGS (4)
  1. VYVANSE [Suspect]
     Indication: ATTENTION DEFICIT/HYPERACTIVITY DISORDER
     Dosage: 50 MG, 1X/DAY:QD, ORAL
     Route: 048
     Dates: start: 20081205
  2. AMBIEN [Concomitant]
  3. ZOLOFT [Concomitant]
  4. CLONAZEPAM [Concomitant]

REACTIONS (5)
  - AGGRESSION [None]
  - CHEST PAIN [None]
  - DRUG EFFECT DECREASED [None]
  - DYSENTERY [None]
  - IRRITABILITY [None]
